FAERS Safety Report 23980827 (Version 1)
Quarter: 2024Q2

REPORT INFORMATION
  Report Type: Other
  Country: FR (occurrence: FR)
  Receive Date: 20240617
  Receipt Date: 20240617
  Transmission Date: 20240716
  Serious: Yes (Hospitalization)
  Sender: FDA-Public Use
  Company Number: None

PATIENT

DRUGS (3)
  1. LEVETIRACETAM [Suspect]
     Active Substance: LEVETIRACETAM
     Indication: Frontal lobe epilepsy
     Dosage: 500 MILLIGRAM, QD
     Route: 064
     Dates: start: 20230407, end: 20230801
  2. LAMOTRIGINE [Suspect]
     Active Substance: LAMOTRIGINE
     Indication: Frontal lobe epilepsy
     Dosage: 250 MILLIGRAM, QD
     Route: 064
     Dates: start: 20221211, end: 20230801
  3. CLOBAZAM [Suspect]
     Active Substance: CLOBAZAM
     Indication: Frontal lobe epilepsy
     Dosage: 10 MILLIGRAM, QD
     Route: 064
     Dates: start: 20221211, end: 20230801

REACTIONS (2)
  - Premature baby [Recovered/Resolved]
  - Foetal exposure during pregnancy [Recovered/Resolved]

NARRATIVE: CASE EVENT DATE: 20221211
